FAERS Safety Report 10298187 (Version 1)
Quarter: 2014Q3

REPORT INFORMATION
  Report Type: Spontaneous
  Country: US (occurrence: US)
  Receive Date: 20140711
  Receipt Date: 20140711
  Transmission Date: 20150326
  Serious: Yes (Hospitalization)
  Sender: FDA-Public Use
  Company Number: US-GLAXOSMITHKLINE-A1055648A

PATIENT
  Age: 56 Year
  Sex: Female

DRUGS (3)
  1. FLOVENT [Suspect]
     Active Substance: FLUTICASONE PROPIONATE
     Indication: CHRONIC OBSTRUCTIVE PULMONARY DISEASE
     Dosage: 110MCG UNKNOWN
     Route: 055
     Dates: start: 20120913
  2. VENTOLIN [Concomitant]
     Active Substance: ALBUTEROL SULFATE
  3. SEREVENT [Concomitant]
     Active Substance: SALMETEROL XINAFOATE

REACTIONS (1)
  - Pneumonia [Unknown]
